FAERS Safety Report 11036770 (Version 1)
Quarter: 2015Q2

REPORT INFORMATION
  Report Type: Spontaneous
  Country: US (occurrence: US)
  Receive Date: 20150416
  Receipt Date: 20150416
  Transmission Date: 20150821
  Serious: No
  Sender: FDA-Public Use
  Company Number: US-DRREDDYS-USA/USA/15/0046103

PATIENT
  Age: 49 Year
  Sex: Female
  Weight: 53.52 kg

DRUGS (1)
  1. ZENATANE [Suspect]
     Active Substance: ISOTRETINOIN
     Indication: ACNE
     Dosage: 40 MG DAILY ALTERNATING WITH 80 MG DAILY
     Route: 048
     Dates: start: 20150129, end: 20150212

REACTIONS (2)
  - Hypersensitivity [Recovering/Resolving]
  - Dry skin [Recovering/Resolving]

NARRATIVE: CASE EVENT DATE: 20150207
